FAERS Safety Report 5078977-3 (Version None)
Quarter: 2006Q3

REPORT INFORMATION
  Report Type: 
  Country: None (occurrence: None)
  Receive Date: 20060814
  Receipt Date: 20060808
  Transmission Date: 20061208
  Serious: Yes (Other)
  Sender: FDA-Public Use
  Company Number: US-BRACCO-BDI-008517

PATIENT
  Age: 16 Year
  Sex: Female

DRUGS (1)
  1. RENOGRAFIN-DIP INJ [Suspect]
     Route: 008
     Dates: start: 20060808, end: 20060808

REACTIONS (2)
  - CONVULSION [None]
  - INCORRECT ROUTE OF DRUG ADMINISTRATION [None]
